FAERS Safety Report 16181139 (Version 2)
Quarter: 2019Q4

REPORT INFORMATION
  Report Type: Spontaneous
  Country: US (occurrence: US)
  Receive Date: 20190410
  Receipt Date: 20191103
  Transmission Date: 20200122
  Serious: Yes (Hospitalization, Congenital Anomaly, Other)
  Sender: FDA-Public Use
  Company Number: US-BIOMARINAP-US-2019-122809

PATIENT

DRUGS (1)
  1. VIMIZIM [Suspect]
     Active Substance: ELOSULFASE ALFA
     Indication: MUCOPOLYSACCHARIDOSIS IV
     Dosage: 50 MILLIGRAM, QW
     Route: 042
     Dates: start: 2014

REACTIONS (4)
  - Medical device removal [Recovered/Resolved]
  - Hip surgery [Recovered/Resolved]
  - Ankle operation [Recovered/Resolved]
  - Osteotomy [Unknown]

NARRATIVE: CASE EVENT DATE: 20190402
